FAERS Safety Report 7900115-7 (Version None)
Quarter: 2011Q4

REPORT INFORMATION
  Report Type: 
  Country: None (occurrence: None)
  Receive Date: 20111108
  Receipt Date: 20111029
  Transmission Date: 20120403
  Serious: No
  Sender: FDA-Public Use
  Company Number: US-BIOGENIDEC-2011BI008285

PATIENT
  Age: 40 Year
  Sex: Female

DRUGS (1)
  1. TYSABRI [Suspect]
     Indication: MULTIPLE SCLEROSIS
     Route: 042
     Dates: start: 20110221

REACTIONS (10)
  - DIARRHOEA [None]
  - FLUSHING [None]
  - MUSCLE SPASMS [None]
  - PAIN [None]
  - URTICARIA [None]
  - ALOPECIA [None]
  - OEDEMA MOUTH [None]
  - SWELLING FACE [None]
  - TREMOR [None]
  - MALAISE [None]
